FAERS Safety Report 8018835-5 (Version None)
Quarter: 2012Q1

REPORT INFORMATION
  Report Type: 
  Country: None (occurrence: None)
  Receive Date: 20120103
  Receipt Date: 20111227
  Transmission Date: 20120608
  Serious: Yes (Life-Threatening)
  Sender: FDA-Public Use
  Company Number: JP-PFIZER INC-2011296911

PATIENT
  Age: 82 Year
  Sex: Male

DRUGS (10)
  1. CEFTAZIDIME SODIUM [Suspect]
     Indication: PNEUMONIA ASPIRATION
     Dosage: 2 G, 2X/DAY
     Route: 041
     Dates: start: 20111203, end: 20111209
  2. WARFARIN SODIUM [Suspect]
     Indication: ANGINA PECTORIS
     Dosage: 3 DF, 1X/DAY
     Route: 048
     Dates: start: 20111124, end: 20111202
  3. AMINO ACIDS NOS/CARBOHYDRATES NOS/ELECTROLYTES NOS [Concomitant]
     Indication: SHORT-BOWEL SYNDROME
     Dosage: 1200 ML, 1X/DAY
     Route: 041
     Dates: start: 20111119, end: 20111219
  4. LOPERAMIDE HCL [Concomitant]
     Indication: DIARRHOEA
     Dosage: 1 DF, 1X/DAY
     Route: 048
     Dates: start: 20111126, end: 20111219
  5. OLMESARTAN MEDOXOMIL [Concomitant]
     Indication: HYPERTENSION
     Dosage: 40 MG, 1X/DAY
     Route: 048
     Dates: start: 20111118, end: 20111219
  6. WARFARIN SODIUM [Suspect]
     Dosage: 2.5 DF, 1X/DAY
     Route: 048
     Dates: start: 20111203, end: 20111206
  7. FAMOTIDINE [Concomitant]
     Indication: GASTRIC ULCER
     Dosage: 10 MG, 2X/DAY
     Route: 048
     Dates: start: 20111118, end: 20111219
  8. CLINDAMYCIN HCL [Suspect]
     Indication: PNEUMONIA ASPIRATION
     Dosage: 600 MG, 2X/DAY
     Route: 041
     Dates: start: 20111203, end: 20111209
  9. LASIX [Concomitant]
     Indication: HYPERTENSION
     Dosage: 20 MG, 1X/DAY
     Route: 048
     Dates: start: 20111119, end: 20111219
  10. AMLODIPINE [Concomitant]
     Indication: HYPERTENSION
     Dosage: 5 MG, 2X/DAY
     Route: 048
     Dates: start: 20111124, end: 20111215

REACTIONS (1)
  - INTERNATIONAL NORMALISED RATIO INCREASED [None]
